FAERS Safety Report 4837964-8 (Version None)
Quarter: 2005Q4

REPORT INFORMATION
  Report Type: 
  Country: None (occurrence: None)
  Receive Date: 20051123
  Receipt Date: 20051114
  Transmission Date: 20060501
  Serious: Yes (Other)
  Sender: FDA-Public Use
  Company Number: 2005153262

PATIENT
  Age: 63 Year
  Sex: Male

DRUGS (6)
  1. ALDACTONE [Suspect]
     Indication: ILL-DEFINED DISORDER
     Dosage: SEE IMAGE
     Route: 048
     Dates: end: 20051027
  2. ALDACTONE [Suspect]
     Indication: ILL-DEFINED DISORDER
     Dosage: SEE IMAGE
     Route: 048
     Dates: start: 20050214
  3. URSODIOL [Concomitant]
  4. LASIX [Concomitant]
  5. OMEPRAZOLE [Concomitant]
  6. FAMOTIDINE [Concomitant]

REACTIONS (4)
  - BLOOD URIC ACID INCREASED [None]
  - BREAST MASS [None]
  - GYNAECOMASTIA [None]
  - HEPATIC NEOPLASM MALIGNANT [None]
